FAERS Safety Report 10918454 (Version 4)
Quarter: 2018Q3

REPORT INFORMATION
  Report Type: Spontaneous
  Country: US (occurrence: US)
  Receive Date: 20150316
  Receipt Date: 20180913
  Transmission Date: 20181010
  Serious: No
  Sender: FDA-Public Use
  Company Number: US-ASTELLAS-2014US020653

PATIENT
  Age: 66 Year
  Sex: Male

DRUGS (1)
  1. XTANDI [Suspect]
     Active Substance: ENZALUTAMIDE
     Indication: PROSTATE CANCER
     Dosage: 160 MG (4X40MG), ONCE DAILY
     Route: 048
     Dates: start: 20140329

REACTIONS (6)
  - Accidental overdose [Unknown]
  - Drug dose omission [Unknown]
  - Muscle spasms [Recovered/Resolved]
  - Rash [Unknown]
  - Fatigue [Unknown]
  - Chapped lips [Unknown]

NARRATIVE: CASE EVENT DATE: 20141217
